FAERS Safety Report 9339410 (Version 2)
Quarter: 2013Q4

REPORT INFORMATION
  Report Type: Spontaneous
  Country: US (occurrence: US)
  Receive Date: 20130610
  Receipt Date: 20131018
  Transmission Date: 20140711
  Serious: Yes (Hospitalization, Other)
  Sender: FDA-Public Use
  Company Number: US-BIOGENIDEC-2013BI050715

PATIENT
  Age: 53 Year
  Sex: Male

DRUGS (2)
  1. TYSABRI [Suspect]
     Indication: MULTIPLE SCLEROSIS
     Route: 042
     Dates: start: 20100325
  2. AVONEX [Concomitant]
     Indication: MULTIPLE SCLEROSIS
     Route: 042

REACTIONS (5)
  - Fall [Unknown]
  - Excoriation [Unknown]
  - General physical health deterioration [Not Recovered/Not Resolved]
  - Weight bearing difficulty [Unknown]
  - Wound infection [Unknown]
